FAERS Safety Report 17182010 (Version 1)
Quarter: 2019Q4

REPORT INFORMATION
  Report Type: Spontaneous
  Country: US (occurrence: US)
  Receive Date: 20191219
  Receipt Date: 20191219
  Transmission Date: 20200122
  Serious: Yes (Other)
  Sender: FDA-Public Use
  Company Number: US-TEVA-2019-US-1153561

PATIENT

DRUGS (1)
  1. ARSENIC [Suspect]
     Active Substance: ARSENIC
     Indication: MYELOID LEUKAEMIA
     Route: 065

REACTIONS (1)
  - Leukaemia [Unknown]
